FAERS Safety Report 20800911 (Version 1)
Quarter: 2022Q2

REPORT INFORMATION
  Report Type: Spontaneous
  Country: SA (occurrence: SA)
  Receive Date: 20220509
  Receipt Date: 20220509
  Transmission Date: 20220721
  Serious: Yes (Hospitalization, Other)
  Sender: FDA-Public Use
  Company Number: SA-LUPIN PHARMACEUTICALS INC.-2022-06587

PATIENT
  Age: 9 Year
  Sex: Female

DRUGS (2)
  1. VORICONAZOLE [Suspect]
     Active Substance: VORICONAZOLE
     Indication: Pseudallescheria infection
     Dosage: UNK UNK, BID (8 MILLIGRAMS PER KILOGRAM PER DOSE (MG/KG/DOSE) TWICE DAILY)
     Route: 048
  2. AMBISOME [Concomitant]
     Active Substance: AMPHOTERICIN B
     Indication: Pseudallescheria infection
     Dosage: UNK 5 MG/KG/DAY, FOR 10 DAYS
     Route: 065

REACTIONS (3)
  - Hypokalaemia [Recovered/Resolved]
  - Rhabdomyolysis [Recovered/Resolved]
  - Off label use [Unknown]
